FAERS Safety Report 5073820-0 (Version None)
Quarter: 2006Q3

REPORT INFORMATION
  Report Type: 
  Country: None (occurrence: None)
  Receive Date: 20060808
  Receipt Date: 20060725
  Transmission Date: 20061208
  Serious: Yes (Hospitalization, Congenital Anomaly, Other)
  Sender: FDA-Public Use
  Company Number: US-MERCK-0607USA04970B1

PATIENT
  Sex: Female
  Weight: 1 kg

DRUGS (3)
  1. COZAAR [Suspect]
     Indication: HYPERTENSION
  2. HYDROCHLOROTHIAZIDE [Concomitant]
     Indication: HYPERTENSION
  3. GABAPENTIN [Suspect]
     Indication: PAIN

REACTIONS (16)
  - ADRENAL INSUFFICIENCY [None]
  - BRADYCARDIA FOETAL [None]
  - DELAYED FONTANELLE CLOSURE [None]
  - HAEMORRHAGIC CEREBRAL INFARCTION [None]
  - HYPOTENSION [None]
  - HYPOTONIA NEONATAL [None]
  - JOINT CONTRACTURE [None]
  - METABOLIC ACIDOSIS [None]
  - NEONATAL RESPIRATORY DISTRESS SYNDROME [None]
  - PREMATURE BABY [None]
  - PULMONARY HYPERTENSION [None]
  - RENAL FAILURE NEONATAL [None]
  - RENAL TUBULAR ACIDOSIS [None]
  - RESPIRATORY FAILURE [None]
  - SEPSIS [None]
  - WEIGHT BELOW NORMAL [None]
